FAERS Safety Report 26125505 (Version 1)
Quarter: 2025Q4

REPORT INFORMATION
  Report Type: Report from Study
  Country: MX (occurrence: MX)
  Receive Date: 20251205
  Receipt Date: 20251205
  Transmission Date: 20260118
  Serious: Yes (Other)
  Sender: EMD SERONO INC
  Company Number: MX-Merck Healthcare KGaA-2025061635

PATIENT
  Age: 10 Year
  Sex: Female

DRUGS (2)
  1. SAIZEN [Suspect]
     Active Substance: SOMATROPIN
     Indication: Precocious puberty
     Dosage: EXPIRATION DATE SEP 2026
     Dates: start: 20240315
  2. MEFENAMIC ACID [Concomitant]
     Active Substance: MEFENAMIC ACID
     Indication: Dysmenorrhoea
     Dosage: 3 TABLETS ORALLY BEFORE MENSTRUATION AND 2 TABLETS DURING MENSTRUATION
     Dates: start: 202412, end: 202510

REACTIONS (5)
  - Ovarian neoplasm [Recovered/Resolved]
  - Heavy menstrual bleeding [Recovered/Resolved]
  - Dysmenorrhoea [Recovered/Resolved]
  - Amenorrhoea [Not Recovered/Not Resolved]
  - Vaginal haemorrhage [Not Recovered/Not Resolved]

NARRATIVE: CASE EVENT DATE: 20250801
